FAERS Safety Report 8822428 (Version 1)
Quarter: 2012Q4

REPORT INFORMATION
  Report Type: 
  Country: US (occurrence: US)
  Receive Date: 20121003
  Receipt Date: 20121003
  Transmission Date: 20130627
  Serious: No
  Sender: FDA-Public Use
  Company Number: PHEH2012US019163

PATIENT
  Age: 65 Year
  Sex: Male

DRUGS (6)
  1. TASIGNA [Suspect]
     Dosage: 1 DF, BID
     Route: 048
  2. SIMVASTATIN [Concomitant]
  3. METFORMIN [Concomitant]
  4. ALLOPURINOL [Concomitant]
  5. LISINOPRIL [Concomitant]
  6. PLAVIX [Concomitant]

REACTIONS (1)
  - Myalgia [Unknown]
